FAERS Safety Report 18415025 (Version 1)
Quarter: 2020Q4

REPORT INFORMATION
  Report Type: Spontaneous
  Country: US (occurrence: US)
  Receive Date: 20201022
  Receipt Date: 20201022
  Transmission Date: 20210114
  Serious: No
  Sender: FDA-Public Use
  Company Number: None

PATIENT
  Age: 64 Year
  Sex: Male
  Weight: 93.6 kg

DRUGS (1)
  1. REMDESIVIR. [Suspect]
     Active Substance: REMDESIVIR
     Indication: COVID-19
     Route: 042
     Dates: start: 20200925, end: 20200927

REACTIONS (9)
  - Bilirubin conjugated increased [None]
  - International normalised ratio increased [None]
  - Shock [None]
  - Alanine aminotransferase increased [None]
  - Renal replacement therapy [None]
  - Hepatitis [None]
  - Septic shock [None]
  - Blood alkaline phosphatase increased [None]
  - Acute kidney injury [None]

NARRATIVE: CASE EVENT DATE: 20200928
